FAERS Safety Report 13929740 (Version 4)
Quarter: 2018Q2

REPORT INFORMATION
  Report Type: Report from Study
  Country: US (occurrence: US)
  Receive Date: 20170901
  Receipt Date: 20180627
  Transmission Date: 20180711
  Serious: Yes (Hospitalization, Other)
  Sender: FDA-Public Use
  Company Number: US-SAOL THERAPEUTICS-2017SAO01402

PATIENT
  Age: 45 Year
  Weight: 87.75 kg

DRUGS (15)
  1. DILAUDID [Suspect]
     Active Substance: HYDROMORPHONE HYDROCHLORIDE
     Dosage: 0.9991 MG, \DAY
     Route: 037
     Dates: start: 20170822
  2. BUPIVACAINE. [Suspect]
     Active Substance: BUPIVACAINE
     Dosage: 33.257 MG, \DAY-MAX
     Route: 037
     Dates: start: 20170822
  3. DILAUDID [Suspect]
     Active Substance: HYDROMORPHONE HYDROCHLORIDE
     Dosage: 1.9268 MG, \DAY-MAX
     Route: 037
     Dates: start: 20170822
  4. DILAUDID [Suspect]
     Active Substance: HYDROMORPHONE HYDROCHLORIDE
     Dosage: 1.299 MG, \DAY
     Route: 037
     Dates: start: 20170822
  5. BUPIVACAINE. [Suspect]
     Active Substance: BUPIVACAINE
     Dosage: 13.740 MG, \DAY- MAX
     Route: 037
     Dates: start: 20170328
  6. COMPOUNDED BACLOFEN [Suspect]
     Active Substance: BACLOFEN
     Dosage: 240.84 ?G, \DAY-MAX
     Route: 037
     Dates: start: 20170822
  7. BUPIVACAINE. [Suspect]
     Active Substance: BUPIVACAINE
     Dosage: 28.901 MG, \DAY-MAX
     Route: 037
     Dates: start: 20170822
  8. BUPIVACAINE. [Suspect]
     Active Substance: BUPIVACAINE
     Dosage: 14.987 MG, \DAY
     Route: 037
     Dates: start: 20170822
  9. DILAUDID [Suspect]
     Active Substance: HYDROMORPHONE HYDROCHLORIDE
     Dosage: 0.4000 MG, \DAY
     Route: 037
     Dates: start: 20170328
  10. DILAUDID [Suspect]
     Active Substance: HYDROMORPHONE HYDROCHLORIDE
     Dosage: 0.916 MG, \DAY- MAX
     Route: 037
     Dates: start: 20170328
  11. DILAUDID [Suspect]
     Active Substance: HYDROMORPHONE HYDROCHLORIDE
     Dosage: 0.4000 MG, \DAY
     Route: 037
     Dates: start: 20170822
  12. BUPIVACAINE. [Suspect]
     Active Substance: BUPIVACAINE
     Dosage: 19.493 MG, \DAY
     Route: 037
     Dates: start: 20170822
  13. COMPOUNDED BACLOFEN [Suspect]
     Active Substance: BACLOFEN
     Dosage: 124.89 ?G, \DAY
     Route: 037
     Dates: start: 20170822
  14. BUPIVACAINE. [Suspect]
     Active Substance: BUPIVACAINE
     Dosage: 6.001 MG, \DAY
     Route: 037
     Dates: start: 20170328
  15. DILAUDID [Suspect]
     Active Substance: HYDROMORPHONE HYDROCHLORIDE
     Dosage: 2.217 MG, \DAY-MAX
     Route: 037
     Dates: start: 20170822

REACTIONS (3)
  - Nausea [Not Recovered/Not Resolved]
  - Pain [Recovered/Resolved]
  - Device malfunction [Recovered/Resolved]

NARRATIVE: CASE EVENT DATE: 20170801
